FAERS Safety Report 13695703 (Version 3)
Quarter: 2017Q2

REPORT INFORMATION
  Report Type: Other
  Country: US (occurrence: US)
  Receive Date: 20170627
  Receipt Date: 20170629
  Transmission Date: 20170830
  Serious: No
  Sender: FDA-Public Use
  Company Number: US-SHIRE-US201713446

PATIENT
  Sex: Female

DRUGS (1)
  1. NATPARA (PARATHYROID HORMONE) [Suspect]
     Active Substance: PARATHYROID HORMONE
     Indication: HYPOPARATHYROIDISM
     Dosage: 75 ?G, 1X/DAY:QD
     Route: 058
     Dates: start: 20160706

REACTIONS (12)
  - Nasal congestion [Unknown]
  - Dyspnoea [Unknown]
  - Nausea [Unknown]
  - Visual impairment [Unknown]
  - Malaise [Unknown]
  - Impaired work ability [Unknown]
  - Discomfort [Unknown]
  - Ear discomfort [Unknown]
  - Feeling abnormal [Unknown]
  - Bone pain [Unknown]
  - Memory impairment [Unknown]
  - Drug ineffective [Unknown]
